FAERS Safety Report 20799451 (Version 1)
Quarter: 2022Q2

REPORT INFORMATION
  Report Type: Spontaneous
  Country: CA (occurrence: CA)
  Receive Date: 20220508
  Receipt Date: 20220508
  Transmission Date: 20220721
  Serious: Yes (Other)
  Sender: FDA-Public Use
  Company Number: CA-BRISTOL-MYERS SQUIBB COMPANY-2022-032168

PATIENT
  Sex: Female

DRUGS (27)
  1. ORENCIA [Suspect]
     Active Substance: ABATACEPT
     Indication: Rheumatoid arthritis
     Route: 058
  2. ORENCIA [Suspect]
     Active Substance: ABATACEPT
     Route: 042
  3. ACTEMRA [Concomitant]
     Active Substance: TOCILIZUMAB
     Indication: Product used for unknown indication
     Route: 065
  4. ARAVA [Concomitant]
     Active Substance: LEFLUNOMIDE
     Indication: Rheumatoid arthritis
     Route: 065
  5. CALCIUM GLUCONATE [Concomitant]
     Active Substance: CALCIUM GLUCONATE
     Indication: Product used for unknown indication
     Route: 065
  6. CERTOLIZUMAB PEGOL [Concomitant]
     Active Substance: CERTOLIZUMAB PEGOL
     Indication: Product used for unknown indication
     Route: 058
  7. CETIRIZINE HYDROCHLORIDE [Concomitant]
     Active Substance: CETIRIZINE HYDROCHLORIDE
     Indication: Product used for unknown indication
     Route: 065
  8. CIMZIA [Concomitant]
     Active Substance: CERTOLIZUMAB PEGOL
     Indication: Rheumatoid arthritis
     Route: 058
  9. COSENTYX [Concomitant]
     Active Substance: SECUKINUMAB
     Indication: Psoriatic arthropathy
     Route: 065
  10. DICLOFENAC SODIUM [Concomitant]
     Active Substance: DICLOFENAC SODIUM
     Indication: Product used for unknown indication
     Route: 065
  11. ENBREL [Concomitant]
     Active Substance: ETANERCEPT
     Indication: Product used for unknown indication
     Route: 058
  12. ERELZI [Concomitant]
     Active Substance: ETANERCEPT-SZZS
     Indication: Rheumatoid arthritis
     Route: 058
  13. FOLIC ACID [Concomitant]
     Active Substance: FOLIC ACID
     Indication: Rheumatoid arthritis
     Route: 065
  14. FOSAMAX [Concomitant]
     Active Substance: ALENDRONATE SODIUM
     Indication: Product used for unknown indication
     Route: 065
  15. HUMIRA [Concomitant]
     Active Substance: ADALIMUMAB
     Indication: Rheumatoid arthritis
     Route: 058
  16. METHOTREXATE [Concomitant]
     Active Substance: METHOTREXATE
     Indication: Rheumatoid arthritis
     Route: 065
  17. PANTOPRAZOLE [Concomitant]
     Active Substance: PANTOPRAZOLE
     Indication: Product used for unknown indication
     Route: 065
  18. HYDROXYCHLOROQUINE DIPHOSPHATE [Concomitant]
     Active Substance: HYDROXYCHLOROQUINE DIPHOSPHATE
     Indication: Product used for unknown indication
     Route: 065
  19. PREDNISONE [Concomitant]
     Active Substance: PREDNISONE
     Indication: Product used for unknown indication
     Route: 065
  20. QUETIAPINE FUMARATE [Concomitant]
     Active Substance: QUETIAPINE FUMARATE
     Indication: Product used for unknown indication
     Route: 065
  21. RAMIPRIL [Concomitant]
     Active Substance: RAMIPRIL
     Indication: Product used for unknown indication
     Route: 065
  22. REMICADE [Concomitant]
     Active Substance: INFLIXIMAB
     Indication: Rheumatoid arthritis
     Route: 042
  23. RITUXIMAB [Concomitant]
     Active Substance: RITUXIMAB
     Indication: Rheumatoid arthritis
     Route: 042
  24. SIMPONI [Concomitant]
     Active Substance: GOLIMUMAB
     Indication: Rheumatoid arthritis
     Route: 058
  25. SULFASALAZINE [Concomitant]
     Active Substance: SULFASALAZINE
     Indication: Rheumatoid arthritis
     Route: 065
  26. TOPICORT [Concomitant]
     Active Substance: DESOXIMETASONE
     Indication: Rheumatoid arthritis
     Route: 065
  27. HYDROXYCHLOROQUINE SULFATE [Concomitant]
     Active Substance: HYDROXYCHLOROQUINE SULFATE
     Indication: Rheumatoid arthritis
     Route: 065

REACTIONS (12)
  - Abdominal discomfort [Not Recovered/Not Resolved]
  - Alopecia [Not Recovered/Not Resolved]
  - Arthropathy [Not Recovered/Not Resolved]
  - Drug ineffective [Unknown]
  - Fatigue [Not Recovered/Not Resolved]
  - Glossodynia [Not Recovered/Not Resolved]
  - Liver injury [Not Recovered/Not Resolved]
  - Pain [Not Recovered/Not Resolved]
  - Pemphigus [Not Recovered/Not Resolved]
  - Psoriatic arthropathy [Not Recovered/Not Resolved]
  - Rheumatoid arthritis [Not Recovered/Not Resolved]
  - Systemic lupus erythematosus [Not Recovered/Not Resolved]
